FAERS Safety Report 20164384 (Version 2)
Quarter: 2021Q4

REPORT INFORMATION
  Report Type: Spontaneous
  Country: ES (occurrence: ES)
  Receive Date: 20211209
  Receipt Date: 20211230
  Transmission Date: 20220303
  Serious: Yes (Death)
  Sender: FDA-Public Use
  Company Number: None

PATIENT
  Age: 77 Year
  Sex: Male

DRUGS (12)
  1. RISPERIDONE [Suspect]
     Active Substance: RISPERIDONE
     Indication: Delirium
     Dosage: 1.5 MILLIGRAM DAILY; 1.5 MG C/24 H, RISPERIDONE (7201A)
     Route: 048
     Dates: start: 20200227, end: 20200730
  2. TRAZODONE HYDROCHLORIDE [Suspect]
     Active Substance: TRAZODONE HYDROCHLORIDE
     Indication: Product used for unknown indication
     Dosage: 100 MILLIGRAM DAILY; 100.0 MG C / 24 H NIGHT, DEPRAX 100 MG FILM-COATED TABLETS EFG, 30 TABLETS
     Route: 048
     Dates: start: 20200420, end: 20200730
  3. CALCIFEDIOL [Concomitant]
     Active Substance: CALCIFEDIOL
     Indication: Nephropathy
     Dosage: 16000.0 UI C / 30 DAYS, HYDROPHEROL 0.266 MG ORAL SOLUTION, 10 DRINKABLE AMPOULES OF 1.5 ML
     Route: 048
     Dates: start: 20180425
  4. REPAGLINIDE [Concomitant]
     Active Substance: REPAGLINIDE
     Indication: Diabetes mellitus
     Dosage: 0.5 MG CE, NOVONORM 0.5 MG, TABLETS, 90 TABLETS
     Route: 048
     Dates: start: 20200605
  5. FOLIC ACID [Concomitant]
     Active Substance: FOLIC ACID
     Indication: Folate deficiency
     Dosage: 5.0 MG C / 48 HOURS, ACFOL 5 MG TABLETS, 28 TABLETS
     Route: 048
     Dates: start: 20190130
  6. MANIDIPINE HYDROCHLORIDE [Concomitant]
     Active Substance: MANIDIPINE HYDROCHLORIDE
     Indication: Hypertension
     Dosage: 5.0 MG CE, ARTEDIL 10 MG TABLETS, 28 TABLETS
     Route: 048
     Dates: start: 20190108
  7. OMEPRAZOL CINFA [Concomitant]
     Indication: Back pain
     Dosage: 20.0 MG A-DE, OMEPRAZOLE CINFA 20 MG, HARD GASTRORE-RESISTANT CAPSULES, 56 CAPSULES (BOTTLE)
     Route: 048
     Dates: start: 20100717
  8. LINAGLIPTIN [Concomitant]
     Active Substance: LINAGLIPTIN
     Indication: Diabetes mellitus
     Dosage: 5 MILLIGRAM DAILY; 5.0 MG C/24 H, TRAJENTA 5 MG FILM-COATED TABLETS, 30 TABLETS
     Route: 048
     Dates: start: 20200521
  9. ZALDIAR [Concomitant]
     Active Substance: ACETAMINOPHEN\TRAMADOL HYDROCHLORIDE
     Indication: Product used for unknown indication
     Dosage: 1.0 COMP C/12 H, ZALDIAR 37.5 MG / 325 MG FILM-COATED TABLETS, 60 TABLETS
     Route: 048
     Dates: start: 20190408
  10. CARVEDILOL CINFA [Concomitant]
     Indication: Essential hypertension
     Dosage: 6.25 MG DE, CARVEDILOL CINFA 6.25 MG TABLETS, 28 TABLETS
     Route: 048
     Dates: start: 20200707
  11. MYCOSTATIN [Concomitant]
     Active Substance: NYSTATIN
     Indication: Neoplasm malignant
     Dosage: 500000.0 IU C / 6 HOURS, MYCOSTATIN 100,000 IU / ML ORAL SUSPENSION, 1 BOTTLE OF 60 ML
     Route: 048
     Dates: start: 20200116
  12. NOLOTIL [Concomitant]
     Indication: Product used for unknown indication
     Dosage: 575.0 MG DECE, NOLOTIL 575 MG HARD CAPSULES, 20 CAPSULES
     Route: 048
     Dates: start: 20181009

REACTIONS (1)
  - Neurological decompensation [Fatal]

NARRATIVE: CASE EVENT DATE: 20200728
